FAERS Safety Report 25289969 (Version 2)
Quarter: 2025Q2

REPORT INFORMATION
  Report Type: Report from Study
  Country: IE (occurrence: IE)
  Receive Date: 20250509
  Receipt Date: 20250605
  Transmission Date: 20250717
  Serious: No
  Sender: TAKEDA
  Company Number: IE-TAKEDA-2024TUS087987

PATIENT
  Age: 64 Year
  Sex: Female

DRUGS (9)
  1. HUMAN IMMUNOGLOBULIN G\HYALURONIDASE RECOMBINANT HUMAN [Suspect]
     Active Substance: HUMAN IMMUNOGLOBULIN G\HYALURONIDASE (HUMAN RECOMBINANT)
     Indication: Myasthenic syndrome
  2. HUMAN IMMUNOGLOBULIN G\HYALURONIDASE RECOMBINANT HUMAN [Suspect]
     Active Substance: HUMAN IMMUNOGLOBULIN G\HYALURONIDASE (HUMAN RECOMBINANT)
  3. HUMAN IMMUNOGLOBULIN G\HYALURONIDASE RECOMBINANT HUMAN [Suspect]
     Active Substance: HUMAN IMMUNOGLOBULIN G\HYALURONIDASE (HUMAN RECOMBINANT)
     Dosage: 42.5 GRAM, Q2WEEKS
  4. HUMAN IMMUNOGLOBULIN G\HYALURONIDASE RECOMBINANT HUMAN [Suspect]
     Active Substance: HUMAN IMMUNOGLOBULIN G\HYALURONIDASE (HUMAN RECOMBINANT)
     Dosage: 42.5 GRAM, Q2WEEKS
     Dates: start: 20240903
  5. LEVOTHYROXINE [Concomitant]
     Active Substance: LEVOTHYROXINE
  6. PANTOPRAZOLE [Concomitant]
     Active Substance: PANTOPRAZOLE
     Dosage: 40 MILLIGRAM, QD
  7. MESTINON [Concomitant]
     Active Substance: PYRIDOSTIGMINE BROMIDE
     Dosage: 60 MILLIGRAM, QID
  8. AZATHIOPRINE [Concomitant]
     Active Substance: AZATHIOPRINE
  9. AMIFAMPRIDINE [Concomitant]
     Active Substance: AMIFAMPRIDINE

REACTIONS (8)
  - Mobility decreased [Recovering/Resolving]
  - Blister [Unknown]
  - Nail discolouration [Unknown]
  - Genital ulceration [Unknown]
  - Rash [Recovered/Resolved]
  - Infusion site pain [Recovered/Resolved]
  - Fatigue [Recovering/Resolving]
  - Off label use [Recovering/Resolving]

NARRATIVE: CASE EVENT DATE: 20240829
